FAERS Safety Report 20563481 (Version 1)
Quarter: 2022Q1

REPORT INFORMATION
  Report Type: Spontaneous
  Country: IR (occurrence: IR)
  Receive Date: 20220308
  Receipt Date: 20220308
  Transmission Date: 20220423
  Serious: Yes (Hospitalization, Other)
  Sender: FDA-Public Use
  Company Number: IR-RISINGPHARMA-IR-2022RISLIT00208

PATIENT
  Age: 29 Month
  Sex: Female

DRUGS (6)
  1. PHENYTOIN [Suspect]
     Active Substance: PHENYTOIN
     Indication: Status epilepticus
     Route: 042
  2. NITRAZEPAM [Concomitant]
     Active Substance: NITRAZEPAM
     Indication: Status epilepticus
     Route: 065
  3. VALPROATE SODIUM [Concomitant]
     Active Substance: VALPROATE SODIUM
     Indication: Status epilepticus
     Route: 042
  4. VALPROATE SODIUM [Concomitant]
     Active Substance: VALPROATE SODIUM
     Route: 065
  5. DIAZEPAM [Concomitant]
     Active Substance: DIAZEPAM
     Indication: Status epilepticus
     Route: 054
  6. DIAZEPAM [Concomitant]
     Active Substance: DIAZEPAM
     Route: 042

REACTIONS (2)
  - Status epilepticus [Recovered/Resolved]
  - Condition aggravated [Recovered/Resolved]
